FAERS Safety Report 9165790 (Version 1)
Quarter: 2013Q1

REPORT INFORMATION
  Report Type: Spontaneous
  Country: GB (occurrence: GB)
  Receive Date: 20130315
  Receipt Date: 20130315
  Transmission Date: 20140127
  Serious: Yes (Disabling, Other)
  Sender: FDA-Public Use
  Company Number: GB-ROCHE-1199455

PATIENT
  Sex: Male

DRUGS (6)
  1. ROACTEMRA [Suspect]
     Indication: RHEUMATOID ARTHRITIS
     Route: 042
     Dates: start: 201201
  2. AZATHIOPRINE [Concomitant]
     Indication: RHEUMATOID ARTHRITIS
     Route: 048
  3. PREDNISOLONE [Concomitant]
     Indication: RHEUMATOID ARTHRITIS
     Dosage: REDUCING DOSE
     Route: 048
  4. OMEPRAZOLE [Concomitant]
  5. CALCICHEW [Concomitant]
  6. ZOLEDRONIC ACID [Concomitant]
     Indication: OSTEOPOROSIS
     Route: 042
     Dates: start: 20121130

REACTIONS (1)
  - Osteonecrosis [Not Recovered/Not Resolved]
